FAERS Safety Report 25551566 (Version 1)
Quarter: 2025Q3

REPORT INFORMATION
  Report Type: Spontaneous
  Country: CN (occurrence: CN)
  Receive Date: 20250714
  Receipt Date: 20250714
  Transmission Date: 20251021
  Serious: Yes (Other)
  Sender: NOVARTIS
  Company Number: CN-002147023-NVSC2025CN110710

PATIENT

DRUGS (1)
  1. SACUBITRIL\VALSARTAN [Suspect]
     Active Substance: SACUBITRIL\VALSARTAN
     Indication: Cardiorenal syndrome
     Dosage: 50 MG, BID (INITIAL DOSE) (THE DOSAGE WAS ADJUSTED EVERY TWO WEEKS ACCORDING TO THE PATIENT^S CONDIT
     Route: 048

REACTIONS (2)
  - Hyperkalaemia [Unknown]
  - Off label use [Unknown]
